FAERS Safety Report 6580674-X (Version None)
Quarter: 2010Q1

REPORT INFORMATION
  Report Type: 
  Country: None (occurrence: None)
  Receive Date: 20100212
  Receipt Date: 20100201
  Transmission Date: 20100710
  Serious: Yes (Other)
  Sender: FDA-Public Use
  Company Number: CL-PFIZER INC-2010013122

PATIENT
  Age: 60 Year
  Sex: Male

DRUGS (5)
  1. METRONIDAZOLE [Suspect]
     Dosage: 750 MG, 1X/DAY
  2. METRONIDAZOLE [Suspect]
     Dosage: 1.5 G, 1X/DAY
  3. SPIRONOLACTONE [Concomitant]
  4. LACTULOSE [Concomitant]
  5. VITAMIN K TAB [Concomitant]

REACTIONS (1)
  - TOXIC ENCEPHALOPATHY [None]
